FAERS Safety Report 18535681 (Version 1)
Quarter: 2020Q4

REPORT INFORMATION
  Report Type: Spontaneous
  Country: US (occurrence: US)
  Receive Date: 20201123
  Receipt Date: 20201123
  Transmission Date: 20210114
  Serious: Yes (Life-Threatening, Hospitalization)
  Sender: FDA-Public Use
  Company Number: US-MYLANLABS-2020M1096379

PATIENT
  Age: 14 Year
  Sex: Female

DRUGS (9)
  1. SALBUTAMOL [Suspect]
     Active Substance: ALBUTEROL
     Dosage: CONTINUOUS TREATMENT
  2. SALBUTAMOL [Suspect]
     Active Substance: ALBUTEROL
     Indication: STATUS ASTHMATICUS
     Dosage: METERED DOSE INHALER
  3. SALBUTAMOL [Suspect]
     Active Substance: ALBUTEROL
     Dosage: THREE NEBULISED TREATMENTS
  4. SEVOFLURANE. [Suspect]
     Active Substance: SEVOFLURANE
     Indication: STATUS ASTHMATICUS
  5. METHYLPREDNISOLONE. [Suspect]
     Active Substance: METHYLPREDNISOLONE
     Indication: STATUS ASTHMATICUS
     Dosage: UNK
     Route: 042
  6. TERBUTALINE [Suspect]
     Active Substance: TERBUTALINE
     Indication: STATUS ASTHMATICUS
     Dosage: UNK
     Route: 042
  7. AMINOPHYLLINE. [Suspect]
     Active Substance: AMINOPHYLLINE
     Indication: STATUS ASTHMATICUS
     Dosage: UNK
     Route: 042
  8. IPRATROPIUM [Concomitant]
     Active Substance: IPRATROPIUM
     Indication: STATUS ASTHMATICUS
     Dosage: THREE NEBULISED TREATMENTS
  9. MAGNESIUM SULFATE. [Suspect]
     Active Substance: MAGNESIUM SULFATE
     Indication: STATUS ASTHMATICUS
     Dosage: UNK
     Route: 042

REACTIONS (1)
  - Drug ineffective [Unknown]
